FAERS Safety Report 9890532 (Version 1)
Quarter: 2014Q1

REPORT INFORMATION
  Report Type: Spontaneous
  Country: US (occurrence: US)
  Receive Date: 20140212
  Receipt Date: 20140212
  Transmission Date: 20141002
  Serious: Yes (Other)
  Sender: FDA-Public Use
  Company Number: US-AMGEN-USASP2014008645

PATIENT
  Sex: Female

DRUGS (2)
  1. NEUPOGEN [Suspect]
     Indication: PRODUCT USED FOR UNKNOWN INDICATION
     Dosage: UNK
     Route: 065
  2. INTERFERON [Concomitant]
     Indication: HEPATITIS C
     Dosage: UNK

REACTIONS (4)
  - Pancreatic carcinoma [Unknown]
  - Spleen disorder [Unknown]
  - White blood cell count decreased [Unknown]
  - Injection site pain [Unknown]
